FAERS Safety Report 5454684-X (Version None)
Quarter: 2007Q3

REPORT INFORMATION
  Report Type: 
  Country: None (occurrence: None)
  Receive Date: 20070917
  Receipt Date: 20060913
  Transmission Date: 20080115
  Serious: No
  Sender: FDA-Public Use
  Company Number: US-ASTRAZENECA-2006UW17924

PATIENT
  Age: 56 Year
  Sex: Female
  Weight: 104.3 kg

DRUGS (16)
  1. SEROQUEL [Suspect]
     Indication: THINKING ABNORMAL
     Route: 048
     Dates: start: 20050101
  2. SURMONTIL [Concomitant]
  3. INSULIN [Concomitant]
  4. LANTUS [Concomitant]
  5. NOVOLOG [Concomitant]
  6. CARDIZEM [Concomitant]
  7. LOPID [Concomitant]
  8. BUMEX [Concomitant]
  9. TRAZODONE HCL [Concomitant]
  10. CLONOPIN [Concomitant]
  11. ECOTRIN [Concomitant]
  12. NEXIUM [Concomitant]
     Route: 048
  13. ZANTAC 150 [Concomitant]
  14. VICODIN [Concomitant]
  15. ROBAXIN [Concomitant]
  16. RESTASIS [Concomitant]

REACTIONS (2)
  - BLOOD GLUCOSE INCREASED [None]
  - WEIGHT INCREASED [None]
